FAERS Safety Report 5794731-9 (Version None)
Quarter: 2008Q2

REPORT INFORMATION
  Report Type: 
  Country: None (occurrence: None)
  Receive Date: 20080625
  Receipt Date: 20080610
  Transmission Date: 20081010
  Serious: Yes (Other)
  Sender: FDA-Public Use
  Company Number: DSA_32014_2008

PATIENT
  Sex: Male

DRUGS (4)
  1. LORAZEPAM [Suspect]
     Indication: DRUG USE FOR UNKNOWN INDICATION
     Dosage: 16 MG QD PRESCRIBED AMOUNT UNKNOWN ORAL
     Route: 048
  2. LORAZEPAM [Suspect]
     Indication: DRUG USE FOR UNKNOWN INDICATION
     Dosage: TAPERING DOSE ORAL
     Route: 048
  3. LORAZEPAM [Suspect]
     Indication: DRUG USE FOR UNKNOWN INDICATION
     Dosage: 3 MG  QD ORAL
     Route: 048
  4. TREVILOR [Concomitant]

REACTIONS (3)
  - DRUG DEPENDENCE [None]
  - ERECTILE DYSFUNCTION [None]
  - OVERDOSE [None]
